FAERS Safety Report 24997066 (Version 1)
Quarter: 2025Q1

REPORT INFORMATION
  Report Type: Spontaneous
  Country: CN (occurrence: CN)
  Receive Date: 20250221
  Receipt Date: 20250221
  Transmission Date: 20250408
  Serious: Yes (Hospitalization)
  Sender: GE HEALTHCARE
  Company Number: CN-GE HEALTHCARE-2025CSU001974

PATIENT
  Age: 62 Year
  Sex: Female
  Weight: 64 kg

DRUGS (1)
  1. OMNIPAQUE [Suspect]
     Active Substance: IOHEXOL
     Indication: Computerised tomogram abdomen
     Route: 042
     Dates: start: 20250103, end: 20250103

REACTIONS (2)
  - Dysphonia [Recovering/Resolving]
  - Rash [Recovering/Resolving]

NARRATIVE: CASE EVENT DATE: 20250103
